FAERS Safety Report 7470230-3 (Version None)
Quarter: 2011Q2

REPORT INFORMATION
  Report Type: 
  Country: None (occurrence: None)
  Receive Date: 20110506
  Receipt Date: 20110506
  Transmission Date: 20111010
  Serious: No
  Sender: FDA-Public Use
  Company Number: None

PATIENT
  Age: 30 Year
  Sex: Male
  Weight: 74.8 kg

DRUGS (1)
  1. IBUPROFEN [Suspect]

REACTIONS (1)
  - JOINT SWELLING [None]
